FAERS Safety Report 15533945 (Version 3)
Quarter: 2019Q2

REPORT INFORMATION
  Report Type: Spontaneous
  Country: US (occurrence: US)
  Receive Date: 20181019
  Receipt Date: 20190529
  Transmission Date: 20190711
  Serious: Yes (Hospitalization, Other)
  Sender: FDA-Public Use
  Company Number: US-ASTRAZENECA-2018SF32569

PATIENT
  Age: 22743 Day
  Sex: Male
  Weight: 89.8 kg

DRUGS (34)
  1. NEXIUM [Suspect]
     Active Substance: ESOMEPRAZOLE MAGNESIUM
     Indication: GASTROOESOPHAGEAL REFLUX DISEASE
     Route: 048
     Dates: start: 2010, end: 2014
  2. NEXIUM [Suspect]
     Active Substance: ESOMEPRAZOLE MAGNESIUM
     Indication: GASTROOESOPHAGEAL REFLUX DISEASE
     Route: 048
     Dates: start: 20131028
  3. PREVACID [Suspect]
     Active Substance: LANSOPRAZOLE
     Indication: GASTROOESOPHAGEAL REFLUX DISEASE
     Route: 048
     Dates: start: 20051127
  4. NYSTOP [Concomitant]
     Active Substance: NYSTATIN
  5. SUCRALFATE. [Concomitant]
     Active Substance: SUCRALFATE
  6. CARISOPRODOL. [Concomitant]
     Active Substance: CARISOPRODOL
  7. PREVACID [Suspect]
     Active Substance: LANSOPRAZOLE
     Indication: GASTROOESOPHAGEAL REFLUX DISEASE
     Route: 065
     Dates: start: 20051127, end: 20091030
  8. PREVACID [Suspect]
     Active Substance: LANSOPRAZOLE
     Indication: GASTROOESOPHAGEAL REFLUX DISEASE
     Route: 065
     Dates: start: 2005, end: 2009
  9. TUMS [Concomitant]
     Active Substance: CALCIUM CARBONATE
  10. CARVEDILOL. [Concomitant]
     Active Substance: CARVEDILOL
  11. OMEPRAZOLE. [Concomitant]
     Active Substance: OMEPRAZOLE
  12. NEXIUM [Suspect]
     Active Substance: ESOMEPRAZOLE MAGNESIUM
     Indication: GASTROOESOPHAGEAL REFLUX DISEASE
     Route: 048
     Dates: start: 20051127, end: 20091030
  13. PROTONIX [Suspect]
     Active Substance: PANTOPRAZOLE SODIUM
     Route: 048
     Dates: start: 20170127
  14. BACLOFEN. [Concomitant]
     Active Substance: BACLOFEN
  15. CEPHALEXIN. [Concomitant]
     Active Substance: CEPHALEXIN
  16. SULFAMETHOXAZOLE [Concomitant]
     Active Substance: SULFAMETHOXAZOLE
  17. LEVOFLOXACIN. [Concomitant]
     Active Substance: LEVOFLOXACIN
  18. CELEBREX [Concomitant]
     Active Substance: CELECOXIB
  19. TOPIRAMATE. [Concomitant]
     Active Substance: TOPIRAMATE
  20. PROTONIX [Suspect]
     Active Substance: PANTOPRAZOLE SODIUM
     Route: 065
     Dates: start: 20051127, end: 20091030
  21. AMOXICILLIN. [Concomitant]
     Active Substance: AMOXICILLIN
  22. NOVOLOG [Concomitant]
     Active Substance: INSULIN ASPART
  23. FAMOTIDINE. [Concomitant]
     Active Substance: FAMOTIDINE
  24. SIMVASTATIN. [Concomitant]
     Active Substance: SIMVASTATIN
  25. OXYCODONE-ACETAMINOPHEN [Concomitant]
     Active Substance: ACETAMINOPHEN\OXYCODONE HYDROCHLORIDE
  26. AZITHROMYCIN ANHYDROUS. [Concomitant]
     Active Substance: AZITHROMYCIN ANHYDROUS
  27. LANTUS SOLOSTAR [Concomitant]
     Active Substance: INSULIN GLARGINE
  28. DOXYCYCLINE HYCLATE. [Concomitant]
     Active Substance: DOXYCYCLINE HYCLATE
  29. MUPIROCIN. [Concomitant]
     Active Substance: MUPIROCIN
  30. AMLODIPINE BESYLATE. [Concomitant]
     Active Substance: AMLODIPINE BESYLATE
  31. CARVEDILOL. [Concomitant]
     Active Substance: CARVEDILOL
  32. BENZONATATE. [Concomitant]
     Active Substance: BENZONATATE
  33. FUROSEMIDE. [Concomitant]
     Active Substance: FUROSEMIDE
  34. DIOVAN [Concomitant]
     Active Substance: VALSARTAN

REACTIONS (5)
  - End stage renal disease [Unknown]
  - Acute kidney injury [Unknown]
  - Nephrogenic anaemia [Unknown]
  - Chronic kidney disease [Not Recovered/Not Resolved]
  - Renal failure [Not Recovered/Not Resolved]

NARRATIVE: CASE EVENT DATE: 20131202
